FAERS Safety Report 21787363 (Version 2)
Quarter: 2023Q1

REPORT INFORMATION
  Report Type: Spontaneous
  Country: US (occurrence: US)
  Receive Date: 20221228
  Receipt Date: 20230328
  Transmission Date: 20230418
  Serious: Yes (Hospitalization, Other)
  Sender: FDA-Public Use
  Company Number: US-CIPLA LTD.-2022US07324

PATIENT

DRUGS (9)
  1. CYCLOPHOSPHAMIDE [Suspect]
     Active Substance: CYCLOPHOSPHAMIDE
     Indication: Medulloblastoma
     Dosage: UNK
     Route: 065
  2. CYCLOPHOSPHAMIDE [Suspect]
     Active Substance: CYCLOPHOSPHAMIDE
     Indication: Metastases to central nervous system
  3. CYCLOPHOSPHAMIDE [Suspect]
     Active Substance: CYCLOPHOSPHAMIDE
     Indication: Metastases to spine
  4. CISPLATIN [Suspect]
     Active Substance: CISPLATIN
     Indication: Medulloblastoma
     Dosage: UNK
     Route: 065
  5. CISPLATIN [Suspect]
     Active Substance: CISPLATIN
     Indication: Metastases to central nervous system
  6. CISPLATIN [Suspect]
     Active Substance: CISPLATIN
     Indication: Metastases to spine
  7. VINCRISTINE [Suspect]
     Active Substance: VINCRISTINE
     Indication: Medulloblastoma
     Dosage: UNK
     Route: 065
  8. VINCRISTINE [Suspect]
     Active Substance: VINCRISTINE
     Indication: Metastases to central nervous system
  9. VINCRISTINE [Suspect]
     Active Substance: VINCRISTINE
     Indication: Metastases to spine

REACTIONS (12)
  - COVID-19 [Unknown]
  - Necrotising colitis [Unknown]
  - Cellulitis staphylococcal [Unknown]
  - Dehydration [Unknown]
  - Neutropenia [Recovered/Resolved]
  - Vomiting [Unknown]
  - Posterior reversible encephalopathy syndrome [Unknown]
  - Stomatitis [Unknown]
  - Febrile neutropenia [Unknown]
  - Neuropathy peripheral [Unknown]
  - Peroneal nerve palsy [Unknown]
  - Nausea [Unknown]
